FAERS Safety Report 9081420 (Version 1)
Quarter: 2013Q1

REPORT INFORMATION
  Report Type: Spontaneous
  Country: FR (occurrence: FR)
  Receive Date: 20130130
  Receipt Date: 20130130
  Transmission Date: 20140127
  Serious: Yes (Hospitalization)
  Sender: FDA-Public Use
  Company Number: FR-SANOFI-AVENTIS-2013SA006507

PATIENT
  Age: 70 Year
  Sex: Male

DRUGS (11)
  1. TAXOTERE [Suspect]
     Indication: PROSTATE CANCER METASTATIC
     Route: 042
     Dates: start: 20101221, end: 20101221
  2. TAXOTERE [Suspect]
     Indication: PROSTATE CANCER METASTATIC
     Route: 042
     Dates: start: 20110117, end: 20110117
  3. TAXOTERE [Suspect]
     Indication: PROSTATE CANCER METASTATIC
     Route: 042
     Dates: start: 20110207, end: 20110207
  4. TAXOTERE [Suspect]
     Indication: PROSTATE CANCER METASTATIC
     Route: 042
     Dates: start: 20110228, end: 20110228
  5. TAXOTERE [Suspect]
     Indication: PROSTATE CANCER METASTATIC
     Dosage: CYCLES 5-9
     Route: 042
     Dates: start: 20110321, end: 20110614
  6. TAXOTERE [Suspect]
     Indication: PROSTATE CANCER METASTATIC
     Dosage: CYCLES 5-9
     Route: 042
     Dates: start: 20110704, end: 20110704
  7. TAXOTERE [Suspect]
     Indication: PROSTATE CANCER METASTATIC
     Dosage: CYCLES 5-9
     Route: 042
     Dates: start: 20110725, end: 20110725
  8. TAXOTERE [Suspect]
     Indication: PROSTATE CANCER METASTATIC
     Dosage: CYCLES 5-9
     Route: 042
  9. GRANOCYTE [Concomitant]
  10. CORTANCYL [Concomitant]
  11. LASILIX [Concomitant]

REACTIONS (5)
  - Hygroma colli [Unknown]
  - Dermatitis exfoliative [Recovered/Resolved]
  - Mucosal inflammation [Recovered/Resolved]
  - Cellulitis [Unknown]
  - Oedema peripheral [Unknown]
